FAERS Safety Report 5269603-9 (Version None)
Quarter: 2007Q1

REPORT INFORMATION
  Report Type: 
  Country: None (occurrence: None)
  Receive Date: 20061213
  Receipt Date: 20030806
  Transmission Date: 20070707
  Serious: No
  Sender: FDA-Public Use
  Company Number: 2003AP02725

PATIENT
  Age: 66 Year
  Sex: Female

DRUGS (1)
  1. TAMOXIFEN CITRATE [Suspect]
     Indication: BREAST CANCER
     Dosage: 20 MG DAILY;

REACTIONS (1)
  - UTERINE POLYP [None]
